FAERS Safety Report 14345577 (Version 1)
Quarter: 2018Q1

REPORT INFORMATION
  Report Type: Spontaneous
  Country: US (occurrence: US)
  Receive Date: 20180103
  Receipt Date: 20180103
  Transmission Date: 20180509
  Serious: Yes (Other)
  Sender: FDA-Public Use
  Company Number: PHHY2017US192231

PATIENT
  Age: 39 Year
  Sex: Female

DRUGS (1)
  1. EVEROLIMUS. [Suspect]
     Active Substance: EVEROLIMUS
     Indication: TUBEROUS SCLEROSIS COMPLEX
     Dosage: 5 MG, QD
     Route: 065

REACTIONS (4)
  - Product use in unapproved indication [Unknown]
  - Facial paralysis [Unknown]
  - Hypoaesthesia [Unknown]
  - Diplopia [Unknown]
